FAERS Safety Report 24947183 (Version 1)
Quarter: 2025Q1

REPORT INFORMATION
  Report Type: Spontaneous
  Country: US (occurrence: US)
  Receive Date: 20250210
  Receipt Date: 20250210
  Transmission Date: 20250409
  Serious: Yes (Life-Threatening, Hospitalization, Other)
  Sender: DR REDDYS
  Company Number: US-DRL-USA-USA/2025/02/001879

PATIENT
  Age: 44 Year
  Sex: Female

DRUGS (1)
  1. COLCHICINE [Suspect]
     Active Substance: COLCHICINE
     Indication: Pericarditis

REACTIONS (13)
  - Toxicity to various agents [Unknown]
  - Suicide attempt [Unknown]
  - Multiple organ dysfunction syndrome [Unknown]
  - Respiratory failure [Unknown]
  - Hypotension [Unknown]
  - Hypertransaminasaemia [Unknown]
  - Lactic acidosis [Unknown]
  - Thrombocytopenia [Unknown]
  - Leukopenia [Unknown]
  - Acute kidney injury [Recovered/Resolved]
  - Anuria [Recovered/Resolved]
  - Overdose [Unknown]
  - Product use in unapproved indication [Unknown]
